FAERS Safety Report 12880893 (Version 1)
Quarter: 2016Q4

REPORT INFORMATION
  Report Type: Spontaneous
  Country: SE (occurrence: None)
  Receive Date: 20161024
  Receipt Date: 20161024
  Transmission Date: 20170207
  Serious: Yes (Other)
  Sender: FDA-Public Use
  Company Number: SE2016K4279SPO

PATIENT
  Age: 54 Year
  Sex: Female

DRUGS (11)
  1. D-VITAMIN SOM KOSTTILLSKOTT (VITAMIN D AND ANALOGUES) [Concomitant]
  2. ENALAPRIL KRKA (ENALAPRIL) TABLET [Suspect]
     Active Substance: ENALAPRIL
     Indication: HYPERTENSION
  3. LOSARTAN GENERIC (LOSARTAN POTASSIUM) [Suspect]
     Active Substance: LOSARTAN POTASSIUM
     Indication: HYPERTENSION
  4. OMEPRAZOLE WORLD (OMEPRAZOLE) UNKNOWN [Suspect]
     Active Substance: OMEPRAZOLE
     Dates: start: 2013, end: 2015
  5. HYDROCHLOROTHIAZIDE. [Suspect]
     Active Substance: HYDROCHLOROTHIAZIDE
     Dates: start: 201302
  6. AMLODIPINE GENERIC (AMLODIPINE) [Suspect]
     Active Substance: AMLODIPINE BESYLATE
     Indication: HYPERTENSION
     Dates: start: 2013, end: 2013
  7. SIMVASTATIN TEVA (SIMVASTATIN) [Suspect]
     Active Substance: SIMVASTATIN
     Indication: LIPIDS INCREASED
     Dates: start: 201503, end: 201503
  8. ALLEGRA [Suspect]
     Active Substance: FEXOFENADINE HYDROCHLORIDE
     Indication: HYPERSENSITIVITY
     Dates: start: 2012, end: 201505
  9. METOPROLOL TARTRATE WORLD (METOPROLOL TARTRATE) [Suspect]
     Active Substance: METOPROLOL TARTRATE
  10. FELODIPINE. [Suspect]
     Active Substance: FELODIPINE
     Indication: HYPERTENSION
     Dates: start: 201304, end: 201606
  11. SPIRONOLAKTON PFIZER (SPIRONOLACTONE) [Concomitant]

REACTIONS (10)
  - Back pain [None]
  - Arthralgia [None]
  - Fatigue [None]
  - Peripheral swelling [None]
  - Oropharyngeal pain [None]
  - Chest pain [None]
  - Chest discomfort [None]
  - Pharyngeal oedema [None]
  - Sleep disorder [None]
  - Dry eye [None]

NARRATIVE: CASE EVENT DATE: 201503
